FAERS Safety Report 21335434 (Version 1)
Quarter: 2022Q3

REPORT INFORMATION
  Report Type: Report from Study
  Country: CA (occurrence: CA)
  Receive Date: 20220915
  Receipt Date: 20220915
  Transmission Date: 20221026
  Serious: Yes (Other)
  Sender: FDA-Public Use
  Company Number: CA-JNJFOC-20220863573

PATIENT
  Age: 61 Year
  Sex: Female

DRUGS (2)
  1. SIMPONI [Suspect]
     Active Substance: GOLIMUMAB
     Indication: Rheumatoid arthritis
     Route: 041
     Dates: start: 20220729
  2. SIMPONI [Suspect]
     Active Substance: GOLIMUMAB
     Dosage: SECOND DOSE
     Route: 041
     Dates: start: 20220825

REACTIONS (5)
  - Arthritis infective [Recovering/Resolving]
  - Synovial rupture [Unknown]
  - Pain in jaw [Unknown]
  - Lip swelling [Unknown]
  - Incision site haemorrhage [Unknown]

NARRATIVE: CASE EVENT DATE: 20220825
